FAERS Safety Report 9296721 (Version 4)
Quarter: 2014Q4

REPORT INFORMATION
  Report Type: Spontaneous
  Country: US (occurrence: US)
  Receive Date: 20130517
  Receipt Date: 20141110
  Transmission Date: 20150529
  Serious: Yes (Disabling, Other)
  Sender: FDA-Public Use
  Company Number: US-009507513-1305USA010160

PATIENT
  Sex: Male
  Weight: 131.52 kg

DRUGS (3)
  1. PROPECIA [Suspect]
     Active Substance: FINASTERIDE
     Indication: ALOPECIA
     Dosage: 1 MG, QD
     Route: 048
  2. PROSCAR [Suspect]
     Active Substance: FINASTERIDE
     Indication: PRODUCT USED FOR UNKNOWN INDICATION
     Dosage: UNK
     Route: 048
  3. FINASTERIDE. [Suspect]
     Active Substance: FINASTERIDE
     Indication: ALOPECIA
     Dosage: 5 MG, QD
     Route: 048
     Dates: start: 20110128, end: 201208

REACTIONS (21)
  - Arthropod bite [Unknown]
  - Radiotherapy to prostate [Unknown]
  - Benign prostatic hyperplasia [Unknown]
  - Arthritis [Not Recovered/Not Resolved]
  - Rotator cuff syndrome [Unknown]
  - Carpal tunnel decompression [Unknown]
  - Erectile dysfunction [Recovering/Resolving]
  - Seborrhoeic dermatitis [Unknown]
  - Fatigue [Unknown]
  - Type V hyperlipidaemia [Unknown]
  - Drug administration error [Recovered/Resolved]
  - Seborrhoeic keratosis [Unknown]
  - Essential hypertension [Unknown]
  - Sexual dysfunction [Not Recovered/Not Resolved]
  - Liver disorder [Unknown]
  - Prostate cancer [Recovering/Resolving]
  - Oedema peripheral [Unknown]
  - Carpal tunnel syndrome [Unknown]
  - Limb injury [Not Recovered/Not Resolved]
  - Hypogonadism male [Unknown]
  - Anaemia [Unknown]

NARRATIVE: CASE EVENT DATE: 20101102
